FAERS Safety Report 13461644 (Version 3)
Quarter: 2017Q2

REPORT INFORMATION
  Report Type: Report from Study
  Country: US (occurrence: US)
  Receive Date: 20170420
  Receipt Date: 20170510
  Transmission Date: 20170830
  Serious: Yes (Hospitalization, Other)
  Sender: FDA-Public Use
  Company Number: US-GILEAD-2017-0268626

PATIENT
  Age: 52 Year
  Sex: Female

DRUGS (28)
  1. OXYGEN. [Concomitant]
     Active Substance: OXYGEN
  2. TORSEMIDE. [Concomitant]
     Active Substance: TORSEMIDE
     Dates: start: 20160527
  3. VITAMIN D                          /00107901/ [Concomitant]
     Active Substance: ERGOCALCIFEROL
     Dates: start: 20160728
  4. SPIRONOLACTONE. [Concomitant]
     Active Substance: SPIRONOLACTONE
  5. MINOXIDIL. [Concomitant]
     Active Substance: MINOXIDIL
     Dates: start: 20160728
  6. FIORICET [Concomitant]
     Active Substance: ACETAMINOPHEN\BUTALBITAL\CAFFEINE
     Dates: start: 20160728
  7. LEVOFLOXACIN. [Concomitant]
     Active Substance: LEVOFLOXACIN
  8. CHOLECALCIFEROL [Concomitant]
     Active Substance: CHOLECALCIFEROL
  9. CARISOPRODOL. [Concomitant]
     Active Substance: CARISOPRODOL
  10. TYLENOL [Concomitant]
     Active Substance: ACETAMINOPHEN
     Dates: start: 20160728
  11. LIDOCAINE. [Concomitant]
     Active Substance: LIDOCAINE
  12. DIPHENHYDRAMINE. [Concomitant]
     Active Substance: DIPHENHYDRAMINE
  13. ALPRAZOLAM. [Concomitant]
     Active Substance: ALPRAZOLAM
  14. UPTRAVI [Concomitant]
     Active Substance: SELEXIPAG
     Dates: start: 20161128
  15. RIZATRIPTAN. [Concomitant]
     Active Substance: RIZATRIPTAN
  16. AMBRISENTAN [Suspect]
     Active Substance: AMBRISENTAN
     Indication: PULMONARY HYPERTENSION
     Dosage: 10 MG, QD
     Route: 048
     Dates: start: 20160602
  17. ALDACTONE [Concomitant]
     Active Substance: SPIRONOLACTONE
     Dates: start: 20160527
  18. SYNTHROID [Concomitant]
     Active Substance: LEVOTHYROXINE SODIUM
     Dates: start: 20160527
  19. VENTOLIN [Concomitant]
     Active Substance: ALBUTEROL SULFATE
     Dates: start: 20160728
  20. SPIRIVA [Concomitant]
     Active Substance: TIOTROPIUM BROMIDE MONOHYDRATE
     Dates: start: 20160728
  21. LEVOTHYROXINE. [Concomitant]
     Active Substance: LEVOTHYROXINE
  22. TOBRADEX [Concomitant]
     Active Substance: DEXAMETHASONE\TOBRAMYCIN
  23. ACETAMINOPHEN. [Concomitant]
     Active Substance: ACETAMINOPHEN
  24. FIORICET WITH CODEINE [Concomitant]
     Active Substance: ACETAMINOPHEN\BUTALBITAL\CAFFEINE\CODEINE PHOSPHATE
  25. METOPROL XL [Concomitant]
     Dates: start: 20160527
  26. METRONIDAZOLE. [Concomitant]
     Active Substance: METRONIDAZOLE
  27. METOPROLOL. [Concomitant]
     Active Substance: METOPROLOL
  28. RANITIDINE. [Concomitant]
     Active Substance: RANITIDINE

REACTIONS (2)
  - Gallbladder disorder [Recovered/Resolved]
  - Cholecystitis acute [Recovered/Resolved]
